FAERS Safety Report 20106561 (Version 2)
Quarter: 2022Q1

REPORT INFORMATION
  Report Type: Spontaneous
  Country: GB (occurrence: GB)
  Receive Date: 20211124
  Receipt Date: 20220107
  Transmission Date: 20220423
  Serious: Yes (Other)
  Sender: FDA-Public Use
  Company Number: GB-GLAXOSMITHKLINE-GB2021EME101707

PATIENT
  Age: 73 Year
  Sex: Female

DRUGS (2)
  1. PREDNISOLONE [Suspect]
     Active Substance: PREDNISOLONE
     Indication: Nasal congestion
     Dosage: 30 G
     Route: 065
  2. NUCALA [Suspect]
     Active Substance: MEPOLIZUMAB
     Indication: Asthma
     Dosage: 100 MG, Z EVERY 4 WEEKS
     Route: 058

REACTIONS (16)
  - Dyspnoea exertional [Unknown]
  - Nasal congestion [Unknown]
  - Epistaxis [Unknown]
  - Productive cough [Unknown]
  - Dizziness [Unknown]
  - Illness [Unknown]
  - Drug ineffective [Unknown]
  - Wheezing [Unknown]
  - Cough [Unknown]
  - Peak expiratory flow rate decreased [Unknown]
  - Sneezing [Unknown]
  - Vertigo [Unknown]
  - Balance disorder [Unknown]
  - Meniere^s disease [Unknown]
  - Pulmonary congestion [Unknown]
  - Chest discomfort [Unknown]
